FAERS Safety Report 6614688-8 (Version None)
Quarter: 2010Q1

REPORT INFORMATION
  Report Type: 
  Country: None (occurrence: None)
  Receive Date: 20100304
  Receipt Date: 20100219
  Transmission Date: 20100710
  Serious: Yes (Death)
  Sender: FDA-Public Use
  Company Number: US-RANBAXY-2010RR-31749

PATIENT
  Age: 59 Year
  Sex: Male

DRUGS (3)
  1. ACETAMINOPHEN [Suspect]
     Indication: DRUG USE FOR UNKNOWN INDICATION
     Route: 051
  2. ACETAMINOPHEN/ DIPHENHYDRAMINE [Suspect]
     Indication: DRUG USE FOR UNKNOWN INDICATION
     Route: 051
  3. ACETYLCYSTEINE [Suspect]
     Indication: DRUG USE FOR UNKNOWN INDICATION
     Route: 051

REACTIONS (1)
  - MEDICATION ERROR [None]
